FAERS Safety Report 9378206 (Version 3)
Quarter: 2013Q3

REPORT INFORMATION
  Report Type: Report from Study
  Country: DE (occurrence: DE)
  Receive Date: 20130701
  Receipt Date: 20130808
  Transmission Date: 20140515
  Serious: Yes (Hospitalization)
  Sender: FDA-Public Use
  Company Number: DE-VIIV HEALTHCARE LIMITED-B0904418A

PATIENT
  Age: 49 Year
  Sex: Male
  Weight: 92 kg

DRUGS (3)
  1. MARAVIROC [Suspect]
     Indication: HIV INFECTION
     Dosage: 150MG TWICE PER DAY
     Route: 048
     Dates: start: 20130611
  2. SAQUINAVIR [Concomitant]
     Dosage: 1000MG TWICE PER DAY
     Route: 048
     Dates: start: 20070320
  3. RITONAVIR [Concomitant]
     Dosage: 100MG TWICE PER DAY
     Route: 048
     Dates: start: 20070320

REACTIONS (1)
  - Colitis [Recovered/Resolved]
